FAERS Safety Report 13083894 (Version 1)
Quarter: 2017Q1

REPORT INFORMATION
  Report Type: Spontaneous
  Country: US (occurrence: US)
  Receive Date: 20170104
  Receipt Date: 20170104
  Transmission Date: 20170428
  Serious: No
  Sender: FDA-Public Use
  Company Number: US-BAYER-2017-001289

PATIENT
  Age: 79 Year
  Sex: Female
  Weight: 51 kg

DRUGS (3)
  1. DILANTIN [Concomitant]
     Active Substance: PHENYTOIN
  2. DULCOLAX PICOSULFAT [Concomitant]
     Dosage: SHE WAS DIRECTED TO FIRST TAKE 4 DULCOLAX TABLETS
  3. MIRALAX [Suspect]
     Active Substance: POLYETHYLENE GLYCOL 3350
     Indication: COLONOSCOPY
     Dosage: MIX 238 GRAMS OF MIRALAX INTO 64 OUNCES OF A CLEAR BEVERAGE. THEN TO DRINK 8 OUNCES EVERY HALF HOUR
     Route: 047

REACTIONS (1)
  - Circumstance or information capable of leading to medication error [Unknown]
